FAERS Safety Report 9424406 (Version 1)
Quarter: 2013Q3

REPORT INFORMATION
  Report Type: Spontaneous
  Country: FR (occurrence: FR)
  Receive Date: 20130729
  Receipt Date: 20130729
  Transmission Date: 20140515
  Serious: Yes (Death, Hospitalization)
  Sender: FDA-Public Use
  Company Number: FR-JNJFOC-20130713788

PATIENT
  Age: 90 Year
  Sex: Male

DRUGS (10)
  1. XARELTO [Suspect]
     Indication: ARRHYTHMIA
     Route: 048
     Dates: start: 201301, end: 20130611
  2. TARDYFERON [Suspect]
     Indication: PRODUCT USED FOR UNKNOWN INDICATION
     Route: 048
     Dates: end: 20130612
  3. SINGULAIR [Suspect]
     Indication: ASTHMA
     Route: 048
  4. HEMIGOXINE NATIVELLE [Suspect]
     Indication: PRODUCT USED FOR UNKNOWN INDICATION
     Route: 048
  5. NATISPRAY [Suspect]
     Indication: ANGINA PECTORIS
     Route: 002
  6. INNOVAIR [Suspect]
     Indication: ASTHMA
     Route: 002
  7. SPIRONOLACTONE [Suspect]
     Indication: HYPERTENSION
     Route: 048
  8. FUROSEMIDE [Suspect]
     Indication: HYPERTENSION
     Route: 048
  9. TRINIPATCH [Suspect]
     Indication: ANGINA PECTORIS
     Route: 003
  10. PARACETAMOL [Suspect]
     Indication: PAIN
     Route: 048
     Dates: end: 20130612

REACTIONS (2)
  - Ascites [Fatal]
  - Haemothorax [Fatal]
